FAERS Safety Report 12664786 (Version 1)
Quarter: 2016Q3

REPORT INFORMATION
  Report Type: Spontaneous
  Country: AU (occurrence: AU)
  Receive Date: 20160818
  Receipt Date: 20160818
  Transmission Date: 20161109
  Serious: Yes (Hospitalization, Other)
  Sender: FDA-Public Use
  Company Number: AU-PFIZER INC-2016385020

PATIENT
  Sex: Male

DRUGS (2)
  1. VENLAFAXINE HCL [Suspect]
     Active Substance: VENLAFAXINE HYDROCHLORIDE
     Dosage: 2100 MG, DAILY
  2. VENLAFAXINE HCL [Suspect]
     Active Substance: VENLAFAXINE HYDROCHLORIDE
     Dosage: 3750 MG, DAILY

REACTIONS (6)
  - Weight decreased [Unknown]
  - Tremor [Unknown]
  - Dizziness [Unknown]
  - Muscular weakness [Unknown]
  - Central nervous system stimulation [Unknown]
  - Drug withdrawal syndrome [Unknown]
